FAERS Safety Report 21539494 (Version 1)
Quarter: 2022Q4

REPORT INFORMATION
  Report Type: Report from Study
  Country: US (occurrence: US)
  Receive Date: 20221102
  Receipt Date: 20221102
  Transmission Date: 20230113
  Serious: Yes (Hospitalization, Other)
  Sender: FDA-Public Use
  Company Number: US-ABBVIE-4184589

PATIENT
  Sex: Male

DRUGS (1)
  1. HUMIRA [Suspect]
     Active Substance: ADALIMUMAB
     Indication: Hidradenitis
     Route: 058

REACTIONS (8)
  - Scrotal operation [Recovering/Resolving]
  - Loss of consciousness [Unknown]
  - Neck mass [Unknown]
  - COVID-19 [Recovered/Resolved]
  - Wound [Recovering/Resolving]
  - Hidradenitis [Unknown]
  - Asthenia [Unknown]
  - Scrotal injury [Recovering/Resolving]
